FAERS Safety Report 15077124 (Version 3)
Quarter: 2018Q3

REPORT INFORMATION
  Report Type: Spontaneous
  Country: JP (occurrence: JP)
  Receive Date: 20180627
  Receipt Date: 20180727
  Transmission Date: 20181010
  Serious: Yes (Hospitalization)
  Sender: FDA-Public Use
  Company Number: JP-NOVOPROD-606834

PATIENT
  Age: 67 Year
  Sex: Male
  Weight: 67 kg

DRUGS (10)
  1. BELSOMRA [Concomitant]
     Active Substance: SUVOREXANT
     Indication: INSOMNIA
     Dosage: 15 MG, QD
     Route: 048
  2. METHYCOBAL [Concomitant]
     Active Substance: METHYLCOBALAMIN
     Indication: NEUROPATHY PERIPHERAL
     Dosage: 500 ?G, TID
     Route: 048
  3. EPALRESTAT [Concomitant]
     Active Substance: EPALRESTAT
     Indication: NEUROPATHY PERIPHERAL
     Dosage: 50 MG, TID
     Route: 048
  4. MAGMITT [Concomitant]
     Active Substance: MAGNESIUM OXIDE
     Indication: CONSTIPATION
     Dosage: 250 MG, TID
     Route: 048
  5. VICTOZA [Suspect]
     Active Substance: LIRAGLUTIDE
     Indication: DIABETES MELLITUS
     Dosage: 0.9 MG, QD
     Route: 058
     Dates: start: 201610
  6. RYZODEG 70/30 [Concomitant]
     Active Substance: INSULIN ASPART\INSULIN DEGLUDEC
     Indication: DIABETES MELLITUS
     Dosage: 24 U, QD
     Route: 058
  7. CARBOPLATIN. [Concomitant]
     Active Substance: CARBOPLATIN
     Indication: LUNG NEOPLASM MALIGNANT
     Dosage: 400 MG, QD
     Route: 042
     Dates: start: 20180215, end: 20180420
  8. TS?1 [Concomitant]
     Active Substance: GIMERACIL\OTERACIL\TEGAFUR
     Indication: LUNG NEOPLASM MALIGNANT
     Dosage: 100 MG, QD
     Route: 048
     Dates: start: 20180215, end: 20180503
  9. MONEDAX [Concomitant]
     Indication: NEUROPATHY PERIPHERAL
     Dosage: 50 MG, TID
     Route: 048
  10. CODEINE PHOSPHATE HEMIHYDRATE [Concomitant]
     Active Substance: CODEINE PHOSPHATE
     Indication: INTERSTITIAL LUNG DISEASE
     Dosage: 3 PACKS/ DAY
     Route: 048

REACTIONS (1)
  - Interstitial lung disease [Recovered/Resolved]

NARRATIVE: CASE EVENT DATE: 20180612
